FAERS Safety Report 10886898 (Version 9)
Quarter: 2016Q1

REPORT INFORMATION
  Report Type: Spontaneous
  Country: US (occurrence: US)
  Receive Date: 20150304
  Receipt Date: 20160108
  Transmission Date: 20160525
  Serious: No
  Sender: FDA-Public Use
  Company Number: US-PFIZER INC-2015074392

PATIENT
  Age: 79 Year
  Sex: Female
  Weight: 76.64 kg

DRUGS (7)
  1. SUTENT [Suspect]
     Active Substance: SUNITINIB MALATE
     Dosage: (25 MG 28 DAYS ON/14 DAYS OFF)
     Dates: start: 20141215
  2. SUTENT [Suspect]
     Active Substance: SUNITINIB MALATE
     Dosage: 25 MG DAILY, (4 WEEKS ON AND 2 WEEKS OFF)
     Dates: start: 20150126, end: 20151109
  3. AMLODIPINE [Concomitant]
     Active Substance: AMLODIPINE BESYLATE
     Dosage: UNK
     Dates: start: 2014
  4. BABY ASPIRIN [Concomitant]
     Active Substance: ASPIRIN
     Dosage: UNK
     Dates: end: 201501
  5. ZANTAC [Concomitant]
     Active Substance: RANITIDINE HYDROCHLORIDE
     Dosage: UNK
  6. SUTENT [Suspect]
     Active Substance: SUNITINIB MALATE
     Indication: METASTATIC RENAL CELL CARCINOMA
     Dosage: 50 MG, UNK
     Dates: start: 20141215, end: 20150125
  7. METOPROLOL. [Concomitant]
     Active Substance: METOPROLOL
     Dosage: UNK
     Dates: start: 2014

REACTIONS (14)
  - Palmar-plantar erythrodysaesthesia syndrome [Recovered/Resolved]
  - Vaginal haemorrhage [Unknown]
  - Disease progression [Not Recovered/Not Resolved]
  - Feeling cold [Recovered/Resolved]
  - Haemoglobin decreased [Unknown]
  - Hyperaesthesia [Unknown]
  - Dyspepsia [Recovered/Resolved]
  - Alopecia [Unknown]
  - Dyspepsia [Recovering/Resolving]
  - Metastatic renal cell carcinoma [Not Recovered/Not Resolved]
  - Blood count abnormal [Recovered/Resolved]
  - Back pain [Unknown]
  - Fatigue [Unknown]
  - White blood cell count decreased [Unknown]

NARRATIVE: CASE EVENT DATE: 201412
